FAERS Safety Report 8379085-6 (Version None)
Quarter: 2012Q1

REPORT INFORMATION
  Report Type: 
  Country: None (occurrence: None)
  Receive Date: 20120323
  Receipt Date: 20110323
  Transmission Date: 20120608
  Serious: Yes (Other)
  Sender: FDA-Public Use
  Company Number: 163-21880-11032795

PATIENT
  Age: 60 Year
  Sex: Female
  Weight: 105.2345 kg

DRUGS (1)
  1. REVLIMID [Suspect]
     Indication: MYELODYSPLASTIC SYNDROME
     Dosage: 10 MG, 1 IN 1 D, PO 25 MG, DAILY, PO
     Route: 048
     Dates: start: 20110226, end: 20110303

REACTIONS (2)
  - DERMATITIS ALLERGIC [None]
  - PRURITUS GENERALISED [None]
